FAERS Safety Report 18735277 (Version 1)
Quarter: 2021Q1

REPORT INFORMATION
  Report Type: Spontaneous
  Country: PL (occurrence: IT)
  Receive Date: 20210113
  Receipt Date: 20210113
  Transmission Date: 20210419
  Serious: Yes (Other)
  Sender: FDA-Public Use
  Company Number: PL-BAYER-2021-016095

PATIENT
  Age: 80 Year
  Sex: Female

DRUGS (5)
  1. AMPICILLIN [Suspect]
     Active Substance: AMPICILLIN
     Indication: PYELONEPHRITIS
  2. TAZOBACTAM [Suspect]
     Active Substance: TAZOBACTAM
     Indication: ESCHERICHIA SEPSIS
  3. CIPROXIN [Suspect]
     Active Substance: CIPROFLOXACIN
     Indication: PYELONEPHRITIS
     Dosage: UNK
  4. CEFTOLOZANE [Suspect]
     Active Substance: CEFTOLOZANE
     Indication: ESCHERICHIA SEPSIS
  5. SULBACTAM [Suspect]
     Active Substance: SULBACTAM
     Indication: PYELONEPHRITIS

REACTIONS (2)
  - Clostridium difficile infection [None]
  - Escherichia sepsis [None]
